FAERS Safety Report 16037707 (Version 1)
Quarter: 2019Q1

REPORT INFORMATION
  Report Type: Spontaneous
  Country: US (occurrence: US)
  Receive Date: 20190305
  Receipt Date: 20190305
  Transmission Date: 20190418
  Serious: No
  Sender: FDA-Public Use
  Company Number: US-IMPAX LABORATORIES, LLC-2019-IPXL-00008

PATIENT
  Age: 62 Year
  Sex: Female
  Weight: 74 kg

DRUGS (21)
  1. AZILECT [Concomitant]
     Active Substance: RASAGILINE MESYLATE
     Indication: PRODUCT USED FOR UNKNOWN INDICATION
     Dosage: 1 DOSAGE FORM, QD AT 7AM
     Route: 065
     Dates: start: 20190101
  2. AMANTADIN [Concomitant]
     Active Substance: AMANTADINE
     Indication: PRODUCT USED FOR UNKNOWN INDICATION
     Dosage: 100 MILLIGRAM, AT 7AM
     Route: 065
     Dates: start: 20190101
  3. GABAPENTIN. [Concomitant]
     Active Substance: GABAPENTIN
     Indication: PRODUCT USED FOR UNKNOWN INDICATION
     Dosage: 1 DOSAGE FORM, AT 7AM
     Route: 065
     Dates: start: 20190101
  4. MULTIVITAMIN [Concomitant]
     Active Substance: VITAMINS
     Indication: PRODUCT USED FOR UNKNOWN INDICATION
     Dosage: UNK, BEDTIME
     Route: 065
     Dates: start: 20190101
  5. SINEMET [Concomitant]
     Active Substance: CARBIDOPA\LEVODOPA
     Dosage: 1 DOSAGE FORM, AT 3 PM
     Route: 065
     Dates: start: 20190101
  6. STOOL SOFTENER (DOCUSATE) [Concomitant]
     Active Substance: DOCUSATE
     Indication: PRODUCT USED FOR UNKNOWN INDICATION
     Dosage: 1 DOSAGE FORM, AT 7AM
     Route: 065
     Dates: start: 20190101
  7. GABAPENTIN. [Concomitant]
     Active Substance: GABAPENTIN
     Dosage: 1 DOSAGE FORM, AT 3PM
     Route: 065
     Dates: start: 20190101
  8. SINEMET [Concomitant]
     Active Substance: CARBIDOPA\LEVODOPA
     Indication: PRODUCT USED FOR UNKNOWN INDICATION
     Dosage: 1.5 DOSAGE FORM, AT 7AM
     Route: 065
     Dates: start: 20190101
  9. SINEMET [Concomitant]
     Active Substance: CARBIDOPA\LEVODOPA
     Dosage: 1.5 DOSAGE FORM, AT 11AM
     Route: 065
     Dates: start: 20190101
  10. STOOL SOFTENER (DOCUSATE) [Concomitant]
     Active Substance: DOCUSATE
     Dosage: 1 DOSAGE FORM, AT 11AM
     Route: 065
     Dates: start: 20190101
  11. MIRAPEX [Concomitant]
     Active Substance: PRAMIPEXOLE DIHYDROCHLORIDE
     Dosage: 1 DOSAGE FORM, AT 7PM
     Route: 065
     Dates: start: 20190101
  12. RYTARY [Suspect]
     Active Substance: CARBIDOPA\LEVODOPA
     Indication: PARKINSON^S DISEASE
     Dosage: 2 DOSAGE FORM, QID
     Route: 048
     Dates: start: 20181223
  13. GABAPENTIN. [Concomitant]
     Active Substance: GABAPENTIN
     Dosage: 2 DOSAGE FORM, AT 7PM
     Route: 065
     Dates: start: 20190101
  14. AMANTADIN [Concomitant]
     Active Substance: AMANTADINE
     Dosage: 1 DOSAGE FORM, AT 11AM
     Route: 065
     Dates: start: 20190101
  15. CALCIUM CITRATE WITH VITAMIN D3 [Concomitant]
     Indication: PRODUCT USED FOR UNKNOWN INDICATION
     Dosage: 1 DOSAGE FORM, AT 7AM
     Route: 065
     Dates: start: 20190101
  16. IBANDRONATE SODIUM. [Concomitant]
     Active Substance: IBANDRONATE SODIUM
     Indication: PRODUCT USED FOR UNKNOWN INDICATION
     Dosage: 1 DOSAGE FORM
     Route: 065
     Dates: start: 20190101
  17. MIRAPEX [Concomitant]
     Active Substance: PRAMIPEXOLE DIHYDROCHLORIDE
     Indication: PRODUCT USED FOR UNKNOWN INDICATION
     Dosage: 1 DOSAGE FORM, AT 7AM
     Route: 065
     Dates: start: 20190101
  18. CALCIUM CITRATE WITH VITAMIN D3 [Concomitant]
     Dosage: 1 DOSAGE FORM, AT 7PM
     Route: 065
     Dates: start: 20190101
  19. RYTARY [Suspect]
     Active Substance: CARBIDOPA\LEVODOPA
     Dosage: 2 DOSAGE FORM, TID
     Route: 048
     Dates: start: 20190107
  20. SINEMET [Concomitant]
     Active Substance: CARBIDOPA\LEVODOPA
     Dosage: 1 DOSAGE FORM, AT 7PM
     Route: 065
     Dates: start: 20190101
  21. VITAMIN D3 [Concomitant]
     Active Substance: CHOLECALCIFEROL
     Indication: PRODUCT USED FOR UNKNOWN INDICATION
     Dosage: 1 DOSAGE FORM, AT 3PM
     Route: 065
     Dates: start: 20190101

REACTIONS (4)
  - Somnolence [Recovered/Resolved]
  - Feeling jittery [Recovered/Resolved]
  - Tremor [Recovered/Resolved]
  - Fall [Recovered/Resolved]

NARRATIVE: CASE EVENT DATE: 20181224
